FAERS Safety Report 19007407 (Version 1)
Quarter: 2021Q1

REPORT INFORMATION
  Report Type: Spontaneous
  Country: US (occurrence: US)
  Receive Date: 20210311
  Receipt Date: 20210311
  Transmission Date: 20210420
  Serious: Yes (Other)
  Sender: FDA-Public Use
  Company Number: None

PATIENT
  Age: 23 Year
  Sex: Female
  Weight: 89 kg

DRUGS (1)
  1. LIDOCAINE HYDROCHLORIDE AND EPINEPHRINE [Suspect]
     Active Substance: EPINEPHRINE\LIDOCAINE HYDROCHLORIDE
     Indication: EPIDURAL ANAESTHESIA
     Dosage: ?          OTHER FREQUENCY:ONE TIME;?
     Route: 008
     Dates: start: 20210310, end: 20210310

REACTIONS (1)
  - Hypotension [None]

NARRATIVE: CASE EVENT DATE: 20210310
